FAERS Safety Report 4391648-1 (Version None)
Quarter: 2004Q3

REPORT INFORMATION
  Report Type: 
  Country: None (occurrence: None)
  Receive Date: 20040702
  Receipt Date: 20040428
  Transmission Date: 20050211
  Serious: Yes (Other)
  Sender: FDA-Public Use
  Company Number: 2004UW08668

PATIENT
  Age: 57 Year
  Sex: Male
  Weight: 80.7403 kg

DRUGS (5)
  1. CRESTOR [Suspect]
     Indication: HYPERCHOLESTEROLAEMIA
     Dosage: 10 MG QD PO
     Route: 048
     Dates: start: 20040401
  2. METOPROLOL [Concomitant]
  3. PLAVIX [Concomitant]
  4. ASPIRIN [Concomitant]
  5. ZOLOFT [Concomitant]

REACTIONS (5)
  - COUGH [None]
  - DIFFICULTY IN WALKING [None]
  - DYSPNOEA [None]
  - MYALGIA [None]
  - PHARYNGOLARYNGEAL PAIN [None]
